FAERS Safety Report 21555724 (Version 3)
Quarter: 2023Q1

REPORT INFORMATION
  Report Type: Spontaneous
  Country: IT (occurrence: IT)
  Receive Date: 20221104
  Receipt Date: 20230209
  Transmission Date: 20230418
  Serious: Yes (Other)
  Sender: FDA-Public Use
  Company Number: IT-ROCHE-3152349

PATIENT
  Age: 77 Year
  Sex: Female
  Weight: 77 kg

DRUGS (43)
  1. GLOFITAMAB [Suspect]
     Active Substance: GLOFITAMAB
     Indication: Diffuse large B-cell lymphoma
     Dates: start: 20220727
  2. METHYLPREDNISOLONE [Suspect]
     Active Substance: METHYLPREDNISOLONE
     Indication: Diffuse large B-cell lymphoma
     Dosage: ON 31-AUG-2022 10:40 AM SHE RECEIVED MOST RECENT DOSE 80 MG OF STUDY DRUG METHYPREDNISOLONE PRIOR TO
     Dates: start: 20220629
  3. RITUXIMAB [Suspect]
     Active Substance: RITUXIMAB
     Indication: Diffuse large B-cell lymphoma
     Dates: start: 20220629
  4. DOXORUBICIN [Suspect]
     Active Substance: DOXORUBICIN
     Indication: Diffuse large B-cell lymphoma
     Dosage: ON 31-AUG-2022 4:35 PM, SHE RECEIVED MOST RECENT DOSE 50 MG/M2 OF STUDY DRUG DOXORUBICIN PRIOR TO SA
     Dates: start: 20220629
  5. PREDNISONE [Suspect]
     Active Substance: PREDNISONE
     Indication: Diffuse large B-cell lymphoma
     Dosage: ON 04/SEP/2022, SHE RECEIVED MOST RECENT DOSE 100 MG OF STUDY DRUG PREDNISONE PRIOR TO AE. 04/SEP/20
     Dates: start: 20220630
  6. CYCLOPHOSPHAMIDE [Suspect]
     Active Substance: CYCLOPHOSPHAMIDE
     Indication: Diffuse large B-cell lymphoma
     Dosage: ON31-AUG-2022 3:30 AM SHE RECEIVED MOST RECENT DOSE 750 MG/M2 OF STUDY DRUG CYCLOPHOSPHAMIDE PRIOR T
     Dates: start: 20220629
  7. POLATUZUMAB VEDOTIN [Suspect]
     Active Substance: POLATUZUMAB VEDOTIN
     Indication: Diffuse large B-cell lymphoma
     Dates: start: 20220629
  8. PANTOPRAZOLE [Concomitant]
     Active Substance: PANTOPRAZOLE
     Indication: Product used for unknown indication
     Dosage: UNIT DOSE: 40 MG, DURATION : 1 DAYS
     Dates: start: 20220629, end: 20220629
  9. PANTOPRAZOLE [Concomitant]
     Active Substance: PANTOPRAZOLE
     Dosage: UNIT DOSE: 40 MG, DURATION : 1 DAYS
     Dates: start: 20220727, end: 20220727
  10. PANTOPRAZOLE [Concomitant]
     Active Substance: PANTOPRAZOLE
     Dosage: UNIT DOSE: 40 MG, DURATION : 1 DAYS
     Dates: start: 20220810, end: 20220810
  11. PANTOPRAZOLE [Concomitant]
     Active Substance: PANTOPRAZOLE
     Dosage: UNIT DOSE: 40 MG, DURATION : 1 DAYS
     Dates: start: 20220831, end: 20220831
  12. PANTOPRAZOLE [Concomitant]
     Active Substance: PANTOPRAZOLE
     Dosage: UNIT DOSE: 40 MG, DURATION : 1 DAYS
     Dates: start: 20220817, end: 20220817
  13. PANTOPRAZOLE [Concomitant]
     Active Substance: PANTOPRAZOLE
     Dosage: UNIT DOSE: 40 MG
     Dates: start: 20220705
  14. PANTOPRAZOLE [Concomitant]
     Active Substance: PANTOPRAZOLE
     Dosage: UNIT DOSE: 40 MG, DURATION : 1 DAYS
     Dates: start: 20220720, end: 20220720
  15. PANTOPRAZOLE [Concomitant]
     Active Substance: PANTOPRAZOLE
     Dosage: UNIT DOSE: 40 MG, FREQUENCY TIME : 0.5 DAYS, DURATION : 13 DAYS
     Dates: start: 20220623, end: 20220705
  16. PALONOSETRON [Concomitant]
     Active Substance: PALONOSETRON
     Indication: Product used for unknown indication
     Dosage: DURATION : 1 DAY
     Dates: start: 20220831, end: 20220831
  17. PALONOSETRON [Concomitant]
     Active Substance: PALONOSETRON
     Dosage: UNIT DOSE : 0.5 MG, DURATION : 1 DAY
     Dates: start: 20220629, end: 20220629
  18. PALONOSETRON [Concomitant]
     Active Substance: PALONOSETRON
     Dosage: UNIT DOSE : 0.5 MG, DURATION : 1 DAY
     Dates: start: 20220720, end: 20220720
  19. PALONOSETRON [Concomitant]
     Active Substance: PALONOSETRON
     Dosage: DURATION : 1 DAY
     Dates: start: 20220810, end: 20220810
  20. DEXAMETHASONE [Concomitant]
     Active Substance: DEXAMETHASONE
     Indication: Product used for unknown indication
     Dosage: UNIT DOSE : 5 MG, DURATION : 1 DAY
     Dates: start: 20220817, end: 20220817
  21. DEXAMETHASONE [Concomitant]
     Active Substance: DEXAMETHASONE
     Dosage: UNIT DOSE : 20 MG, DURATION : 1 DAY
     Dates: start: 20220727, end: 20220727
  22. LEVOFLOXACIN [Concomitant]
     Active Substance: LEVOFLOXACIN
     Indication: Neutropenia
     Dosage: DURATION : 4 DAYS
     Dates: start: 20220730, end: 20220802
  23. ENOXAPARIN SODIUM [Concomitant]
     Active Substance: ENOXAPARIN SODIUM
     Indication: Product used for unknown indication
     Dosage: UNIT DOSE: 4000 IU , DURATION : 14 DAYS
     Dates: start: 20220705, end: 20220718
  24. ENOXAPARIN SODIUM [Concomitant]
     Active Substance: ENOXAPARIN SODIUM
     Dosage: UNIT DOSE: 4000 IU
     Dates: start: 20220722
  25. ENOXAPARIN SODIUM [Concomitant]
     Active Substance: ENOXAPARIN SODIUM
     Indication: Product used for unknown indication
     Dosage: UNIT DOSE: 6000 IU ,  DURATION : 3 DAYS
     Dates: start: 20220719, end: 20220721
  26. ENOXAPARIN SODIUM [Concomitant]
     Active Substance: ENOXAPARIN SODIUM
     Dosage: UNIT DOSE: 6000 IU ,  DURATION : 4 DAYS
     Dates: start: 20220701, end: 20220704
  27. ACETAMINOPHEN [Concomitant]
     Active Substance: ACETAMINOPHEN
     Indication: Product used for unknown indication
     Dosage: UNIT DOSE: 1000 MG ,  DURATION : 1 DAYS
     Dates: start: 20220831, end: 20220831
  28. ACETAMINOPHEN [Concomitant]
     Active Substance: ACETAMINOPHEN
     Dosage: UNIT DOSE: 1000 MG ,  DURATION : 1 DAYS
     Dates: start: 20220720, end: 20220720
  29. ACETAMINOPHEN [Concomitant]
     Active Substance: ACETAMINOPHEN
     Dosage: UNIT DOSE: 1000 MG ,  DURATION : 1 DAYS
     Dates: start: 20220629, end: 20220629
  30. ACETAMINOPHEN [Concomitant]
     Active Substance: ACETAMINOPHEN
     Dosage: UNIT DOSE: 1000 MG ,  DURATION : 1 DAYS
     Dates: start: 20220817, end: 20220817
  31. FASTURTEC [Concomitant]
     Active Substance: RASBURICASE
     Indication: Product used for unknown indication
     Dosage: UNIT DOSE: 7.5 MG , DURATION : 6 DAYS
     Dates: start: 20220629, end: 20220704
  32. FASTURTEC [Concomitant]
     Active Substance: RASBURICASE
     Dosage: UNIT DOSE: 7.5 MG , DURATION : 1 DAYS
     Dates: start: 20220721, end: 20220721
  33. CHLORPHENIRAMINE MALEATE [Concomitant]
     Active Substance: CHLORPHENIRAMINE MALEATE
     Indication: Product used for unknown indication
     Dosage: CHLORPHENAMINE [CHLORPHENAMINE], UNIT DOSE: 5 MG , DURATION : 1 DAYS
     Dates: start: 20220720, end: 20220720
  34. CHLORPHENIRAMINE MALEATE [Concomitant]
     Active Substance: CHLORPHENIRAMINE MALEATE
     Dosage: UNIT DOSE: 5 MG , DURATION : 1 DAYS
     Dates: start: 20220817, end: 20220817
  35. CHLORPHENIRAMINE MALEATE [Concomitant]
     Active Substance: CHLORPHENIRAMINE MALEATE
     Dosage: UNIT DOSE: 5 MG , DURATION : 1 DAYS
     Dates: start: 20220810, end: 20220810
  36. CHLORPHENIRAMINE MALEATE [Concomitant]
     Active Substance: CHLORPHENIRAMINE MALEATE
     Dosage: UNIT DOSE: 10 MG , DURATION : 1 DAYS
     Dates: start: 20220629, end: 20220629
  37. CHLORPHENIRAMINE MALEATE [Concomitant]
     Active Substance: CHLORPHENIRAMINE MALEATE
     Dosage: DURATION : 1 DAYS
     Dates: start: 20220727, end: 20220727
  38. CHLORPHENIRAMINE MALEATE [Concomitant]
     Active Substance: CHLORPHENIRAMINE MALEATE
     Dosage: UNIT DOSE: 5 MG , DURATION : 1 DAYS
     Dates: start: 20220831, end: 20220831
  39. ACYCLOVIR [Concomitant]
     Active Substance: ACYCLOVIR
     Indication: Product used for unknown indication
     Dosage: UNIT DOSE : 400 MG
     Dates: start: 20220706
  40. CEFIXIME [Concomitant]
     Active Substance: CEFIXIME
     Indication: Product used for unknown indication
     Dosage: UNIT DOSE: 400 MG, DURATION : 5 DAYS
     Dates: start: 20220705, end: 20220709
  41. MYCOSTATIN [Concomitant]
     Active Substance: NYSTATIN
     Indication: Product used for unknown indication
     Dates: start: 20220705
  42. FONDAPARINUX [Concomitant]
     Active Substance: FONDAPARINUX
     Indication: Product used for unknown indication
     Route: 065
  43. CEFTRIAXONE [Concomitant]
     Active Substance: CEFTRIAXONE
     Indication: Product used for unknown indication
     Route: 065
     Dates: start: 20220817, end: 20220817

REACTIONS (2)
  - Neutropenia [Recovered/Resolved]
  - Neutropenia [Recovered/Resolved]

NARRATIVE: CASE EVENT DATE: 20220729
